FAERS Safety Report 19696835 (Version 2)
Quarter: 2021Q3

REPORT INFORMATION
  Report Type: Spontaneous
  Country: CN (occurrence: CN)
  Receive Date: 20210813
  Receipt Date: 20210819
  Transmission Date: 20211014
  Serious: Yes (Other)
  Sender: FDA-Public Use
  Company Number: CN-BRISTOL-MYERS SQUIBB COMPANY-BMS-2021-077217

PATIENT
  Age: 60 Year
  Sex: Male
  Weight: 77.5 kg

DRUGS (2)
  1. NORMAL SALINE [Concomitant]
     Active Substance: SODIUM CHLORIDE
     Indication: PRODUCT USED FOR UNKNOWN INDICATION
     Dosage: 100 MILLILITER
     Route: 065
  2. OPDIVO [Suspect]
     Active Substance: NIVOLUMAB
     Indication: LUNG NEOPLASM MALIGNANT
     Dosage: 200MG+ NS 100ML, ONCE EVERY 14 DAYS
     Route: 041
     Dates: start: 20190527, end: 20191111

REACTIONS (6)
  - Malignant neoplasm progression [Unknown]
  - Blood thyroid stimulating hormone increased [Unknown]
  - Pneumonia [Recovering/Resolving]
  - Thyroglobulin decreased [Unknown]
  - Off label use [Unknown]
  - Anti-thyroid antibody positive [Unknown]

NARRATIVE: CASE EVENT DATE: 20190805
